FAERS Safety Report 8291544-3 (Version None)
Quarter: 2012Q2

REPORT INFORMATION
  Report Type: 
  Country: None (occurrence: None)
  Receive Date: 20120417
  Receipt Date: 20120412
  Transmission Date: 20120825
  Serious: Yes (Hospitalization, Other)
  Sender: FDA-Public Use
  Company Number: PHHY2011JP100057

PATIENT
  Sex: Male
  Weight: 62 kg

DRUGS (5)
  1. HIRUDOID [Concomitant]
     Indication: PROPHYLAXIS
     Route: 062
     Dates: start: 20101227, end: 20110407
  2. AFINITOR [Suspect]
     Dosage: 5 MG, DAILY
     Route: 048
     Dates: start: 20110115, end: 20110215
  3. AFINITOR [Suspect]
     Dosage: 5 MG, DAILY
     Route: 048
     Dates: start: 20110226
  4. CARVEDILOL [Concomitant]
     Dosage: 10 MG, DAILY
     Dates: start: 20111026
  5. AFINITOR [Suspect]
     Indication: METASTATIC RENAL CELL CARCINOMA
     Dosage: 10 MG, DAILY
     Route: 048
     Dates: start: 20101227, end: 20110115

REACTIONS (2)
  - EJECTION FRACTION DECREASED [None]
  - HYPERGLYCAEMIA [None]
